FAERS Safety Report 8068883-4 (Version None)
Quarter: 2012Q1

REPORT INFORMATION
  Report Type: 
  Country: None (occurrence: None)
  Receive Date: 20120125
  Receipt Date: 20120117
  Transmission Date: 20120608
  Serious: No
  Sender: FDA-Public Use
  Company Number: US-BIOGENIDEC-2012BI001915

PATIENT
  Sex: Female

DRUGS (3)
  1. AVONEX [Suspect]
     Indication: MULTIPLE SCLEROSIS
     Route: 030
     Dates: start: 19990715, end: 20030101
  2. AVONEX [Suspect]
     Route: 030
     Dates: start: 20030101
  3. DITROPAN [Concomitant]
     Indication: BLADDER DISORDER

REACTIONS (5)
  - INCONTINENCE [None]
  - MEMORY IMPAIRMENT [None]
  - BLADDER DISORDER [None]
  - CYSTITIS [None]
  - PRIMARY PROGRESSIVE MULTIPLE SCLEROSIS [None]
